FAERS Safety Report 5652644-7 (Version None)
Quarter: 2008Q1

REPORT INFORMATION
  Report Type: 
  Country: None (occurrence: None)
  Receive Date: 20080305
  Receipt Date: 20080305
  Transmission Date: 20080703
  Serious: Yes (Hospitalization)
  Sender: FDA-Public Use
  Company Number: None

PATIENT
  Sex: Female
  Weight: 59 kg

DRUGS (4)
  1. EVISTA [Suspect]
     Indication: OSTEOPOROSIS
     Dosage: 60 MG DAILY PO
     Route: 048
     Dates: start: 20040301, end: 20080303
  2. EVISTA [Suspect]
     Indication: PROPHYLAXIS
     Dosage: 60 MG DAILY PO
     Route: 048
     Dates: start: 20040301, end: 20080303
  3. CALCIUM SUPPLEMENT [Concomitant]
  4. VITAMIN D [Concomitant]

REACTIONS (1)
  - DEEP VEIN THROMBOSIS [None]
